FAERS Safety Report 14948916 (Version 1)
Quarter: 2018Q2

REPORT INFORMATION
  Report Type: Spontaneous
  Country: US (occurrence: US)
  Receive Date: 20180508
  Receipt Date: 20180508
  Transmission Date: 20180711
  Serious: Yes (Hospitalization, Other)
  Sender: FDA-Public Use
  Company Number: None

PATIENT
  Age: 70 Year
  Sex: Male
  Weight: 61.23 kg

DRUGS (8)
  1. SUPREP BOWEL PREP [Suspect]
     Active Substance: MAGNESIUM SULFATE\POTASSIUM SULFATE\SODIUM SULFATE
     Indication: COLONOSCOPY
     Dosage: ?          QUANTITY:60 DF DOSAGE FORM;?
     Route: 048
     Dates: start: 20180319, end: 20180320
  2. ROSEHIPS [Concomitant]
  3. VIT D3 (2000) [Concomitant]
  4. SAN PALMETTO [Concomitant]
  5. OMEGA 3 [Concomitant]
     Active Substance: OMEGA-3 FATTY ACIDS
  6. GINKO BILOBA [Concomitant]
     Active Substance: GINKGO
  7. BILBERRY EXTRACT PLUS [Concomitant]
  8. VITAMIN C [Concomitant]
     Active Substance: ASCORBIC ACID

REACTIONS (4)
  - Syncope [None]
  - Hypotension [None]
  - Head injury [None]
  - Blood sodium decreased [None]

NARRATIVE: CASE EVENT DATE: 20180320
